FAERS Safety Report 7634569-0 (Version None)
Quarter: 2011Q3

REPORT INFORMATION
  Report Type: 
  Country: None (occurrence: None)
  Receive Date: 20110725
  Receipt Date: 20110718
  Transmission Date: 20111222
  Serious: Yes (Other)
  Sender: FDA-Public Use
  Company Number: US-PFIZER INC-2011044421

PATIENT
  Sex: Female

DRUGS (3)
  1. CHANTIX [Suspect]
     Indication: SMOKING CESSATION THERAPY
     Dosage: UNK
     Dates: start: 20070226, end: 20090105
  2. ALBUTEROL SULFATE AUTOHALER [Concomitant]
     Indication: DYSPNOEA
     Dosage: UNK
     Dates: start: 20070506
  3. SPIRIVA [Concomitant]
     Indication: DYSPNOEA
     Dosage: UNK
     Dates: start: 20070506

REACTIONS (8)
  - ABNORMAL BEHAVIOUR [None]
  - EMOTIONAL DISTRESS [None]
  - SUICIDAL IDEATION [None]
  - AGGRESSION [None]
  - LOSS OF CONSCIOUSNESS [None]
  - DEPRESSION [None]
  - MOOD SWINGS [None]
  - IMPAIRED DRIVING ABILITY [None]
